FAERS Safety Report 21642434 (Version 1)
Quarter: 2022Q4

REPORT INFORMATION
  Report Type: Spontaneous
  Country: TW (occurrence: TW)
  Receive Date: 20221125
  Receipt Date: 20221125
  Transmission Date: 20230113
  Serious: Yes (Hospitalization, Other)
  Sender: FDA-Public Use
  Company Number: TW-Accord-288215

PATIENT
  Age: 57 Year
  Sex: Female

DRUGS (3)
  1. FLUOROURACIL [Suspect]
     Active Substance: FLUOROURACIL
     Indication: Metastatic neoplasm
     Dosage: 5-FU, 2100 MG/M2 INFUSION FOR 44 HOURS
  2. CISPLATIN [Concomitant]
     Active Substance: CISPLATIN
     Indication: Metastatic neoplasm
  3. LEUCOVORIN [Concomitant]
     Active Substance: LEUCOVORIN
     Indication: Metastatic neoplasm

REACTIONS (3)
  - Hyperammonaemic encephalopathy [Recovering/Resolving]
  - Brain oedema [Recovered/Resolved]
  - Intervertebral disc protrusion [Recovered/Resolved]
